FAERS Safety Report 17740413 (Version 1)
Quarter: 2020Q2

REPORT INFORMATION
  Report Type: Spontaneous
  Country: US (occurrence: US)
  Receive Date: 20200504
  Receipt Date: 20200504
  Transmission Date: 20200714
  Serious: Yes (Hospitalization)
  Sender: FDA-Public Use
  Company Number: None

PATIENT
  Age: 44 Year
  Sex: Female
  Weight: 54.8 kg

DRUGS (1)
  1. DOCETAXEL. [Suspect]
     Active Substance: DOCETAXEL
     Indication: BREAST CANCER
     Dosage: ?          OTHER FREQUENCY:EVERY 3 WEEKS;?
     Route: 042
     Dates: start: 20200409, end: 20200430

REACTIONS (7)
  - Nausea [None]
  - Dyspnoea [None]
  - Hot flush [None]
  - Infusion related reaction [None]
  - Cough [None]
  - Chest discomfort [None]
  - Eye pruritus [None]

NARRATIVE: CASE EVENT DATE: 20200430
